FAERS Safety Report 20347335 (Version 1)
Quarter: 2022Q1

REPORT INFORMATION
  Report Type: Spontaneous
  Country: US (occurrence: US)
  Receive Date: 20220118
  Receipt Date: 20220118
  Transmission Date: 20220423
  Serious: Yes (Other)
  Sender: FDA-Public Use
  Company Number: US-SUNOVION-2022SUN000046

PATIENT
  Sex: Male

DRUGS (1)
  1. LONHALA MAGNAIR [Suspect]
     Active Substance: GLYCOPYRROLATE
     Indication: Chronic obstructive pulmonary disease
     Dosage: UNK UNK, BID
     Route: 055

REACTIONS (4)
  - Pulmonary congestion [Unknown]
  - Anosmia [Unknown]
  - Ageusia [Unknown]
  - Suspected COVID-19 [Unknown]
